FAERS Safety Report 21922801 (Version 1)
Quarter: 2023Q1

REPORT INFORMATION
  Report Type: Spontaneous
  Country: US (occurrence: US)
  Receive Date: 20230128
  Receipt Date: 20230128
  Transmission Date: 20230418
  Serious: No
  Sender: FDA-Public Use
  Company Number: US-drreddys-SPO/USA/22/0158488

PATIENT
  Age: 76 Year
  Sex: Male

DRUGS (12)
  1. LENALIDOMIDE [Suspect]
     Active Substance: LENALIDOMIDE
     Indication: Myelodysplastic syndrome
     Dosage: TAKE 1 CAPSULE (5MG TOTAL) BY MOUTH EVERY DAY
     Route: 048
     Dates: start: 20220830
  2. ATORVASTATIN [Concomitant]
     Active Substance: ATORVASTATIN
     Indication: Product used for unknown indication
  3. METFORMIN [Concomitant]
     Active Substance: METFORMIN HYDROCHLORIDE
     Indication: Product used for unknown indication
  4. METOPROLOL SUCCINATE [Concomitant]
     Active Substance: METOPROLOL SUCCINATE
     Indication: Product used for unknown indication
  5. DULCOLAX TBE 5MG [Concomitant]
     Indication: Product used for unknown indication
  6. ASPIRIN POW [Concomitant]
     Indication: Product used for unknown indication
  7. FUROSEMIDE POW [Concomitant]
     Indication: Product used for unknown indication
  8. GLIPIZIDE POW [Concomitant]
     Indication: Product used for unknown indication
  9. LYRICA CAP 300 mg [Concomitant]
     Indication: Product used for unknown indication
  10. MULTIVITAMIN TAB [Concomitant]
     Indication: Product used for unknown indication
  11. VITAMIN B 12 TAB 500MCG [Concomitant]
     Indication: Product used for unknown indication
  12. VITAMIN C POW [Concomitant]
     Indication: Product used for unknown indication

REACTIONS (2)
  - Pruritus [Recovered/Resolved]
  - Product use in unapproved indication [Unknown]
